FAERS Safety Report 10031384 (Version 1)
Quarter: 2014Q1

REPORT INFORMATION
  Report Type: Report from Study
  Country: US (occurrence: US)
  Receive Date: 20140324
  Receipt Date: 20140324
  Transmission Date: 20141002
  Serious: Yes (Other)
  Sender: FDA-Public Use
  Company Number: US-CELGENE-163-21880-14032192

PATIENT
  Age: 40 Year
  Sex: Female
  Weight: 60.84 kg

DRUGS (1)
  1. REVLIMID [Suspect]
     Indication: PLASMA CELL MYELOMA
     Route: 048

REACTIONS (2)
  - Toxicity to various agents [Unknown]
  - Plasma cell myeloma [Unknown]
